FAERS Safety Report 24709765 (Version 4)
Quarter: 2025Q1

REPORT INFORMATION
  Report Type: Spontaneous
  Country: US (occurrence: US)
  Receive Date: 20241209
  Receipt Date: 20250204
  Transmission Date: 20250408
  Serious: No
  Sender: ROCHE
  Company Number: US-ROCHE-10000149950

PATIENT
  Age: 17 Year
  Sex: Male
  Weight: 83.91 kg

DRUGS (4)
  1. HEMLIBRA [Suspect]
     Active Substance: EMICIZUMAB-KXWH
     Indication: Factor VIII deficiency
     Dosage: FORM STRENGTH: 150 MG/ML
     Route: 058
     Dates: start: 202407
  2. HEMLIBRA [Suspect]
     Active Substance: EMICIZUMAB-KXWH
     Dosage: STRENGTH: 105MG/.7ML
     Route: 058
     Dates: start: 202407
  3. HEMLIBRA [Suspect]
     Active Substance: EMICIZUMAB-KXWH
     Dosage: STRENGTH: 150MG/ML
     Route: 058
     Dates: start: 202407
  4. ELOCTATE [Concomitant]
     Active Substance: EFMOROCTOCOG ALFA

REACTIONS (7)
  - Haemorrhage [Recovered/Resolved]
  - Injury [Unknown]
  - Haemorrhage [Unknown]
  - Contusion [Unknown]
  - Haematoma [Unknown]
  - Fractured coccyx [Unknown]
  - Off label use [Unknown]

NARRATIVE: CASE EVENT DATE: 20241028
